FAERS Safety Report 4293616-7 (Version None)
Quarter: 2004Q1

REPORT INFORMATION
  Report Type: 
  Country: None (occurrence: None)
  Receive Date: 20040211
  Receipt Date: 20040211
  Transmission Date: 20041129
  Serious: Yes (Hospitalization)
  Sender: FDA-Public Use
  Company Number: None

PATIENT
  Age: 88 Year
  Sex: Male
  Weight: 65.7716 kg

DRUGS (1)
  1. CLONAZEPAM [Suspect]
     Dosage: 2 OR 3 PILLS

REACTIONS (3)
  - AGITATION [None]
  - FALL [None]
  - MOVEMENT DISORDER [None]
